FAERS Safety Report 11472109 (Version 1)
Quarter: 2015Q3

REPORT INFORMATION
  Report Type: Spontaneous
  Country: US (occurrence: US)
  Receive Date: 20150908
  Receipt Date: 20150908
  Transmission Date: 20151125
  Serious: No
  Sender: FDA-Public Use
  Company Number: US-PFIZER INC-2015295668

PATIENT

DRUGS (1)
  1. CAVERJECT IMPULSE [Suspect]
     Active Substance: ALPROSTADIL
     Dosage: 10 ?G, UNK

REACTIONS (1)
  - Drug ineffective [Recovered/Resolved]
